FAERS Safety Report 6602409-4 (Version None)
Quarter: 2010Q1

REPORT INFORMATION
  Report Type: 
  Country: None (occurrence: None)
  Receive Date: 20100225
  Receipt Date: 20100223
  Transmission Date: 20100710
  Serious: Yes (Other)
  Sender: FDA-Public Use
  Company Number: B0635997A

PATIENT
  Sex: Female

DRUGS (3)
  1. ZANAMIVIR [Suspect]
     Indication: H1N1 INFLUENZA
     Dosage: 600MG TWICE PER DAY
     Route: 042
     Dates: start: 20100114, end: 20100123
  2. ZANAMIVIR [Suspect]
     Dosage: 25MG FOUR TIMES PER DAY
     Route: 055
     Dates: start: 20100114, end: 20100118
  3. OXYGEN [Concomitant]

REACTIONS (1)
  - PANCYTOPENIA [None]
